FAERS Safety Report 9857551 (Version 1)
Quarter: 2014Q1

REPORT INFORMATION
  Report Type: Spontaneous
  Country: US (occurrence: US)
  Receive Date: 20140131
  Receipt Date: 20140131
  Transmission Date: 20141002
  Serious: Yes (Other)
  Sender: FDA-Public Use
  Company Number: PHHY2014US009912

PATIENT
  Sex: 0

DRUGS (3)
  1. CICLOSPORIN [Suspect]
     Dosage: 6 MG/KG, UNK
     Route: 064
  2. PREDNISONE [Suspect]
     Dosage: 7.5 MG, UNK
     Route: 064
  3. PREDNISONE [Suspect]
     Dosage: 10 MG, DAILY
     Route: 064

REACTIONS (3)
  - Sickle cell anaemia [Unknown]
  - Premature baby [Unknown]
  - Foetal exposure during pregnancy [Unknown]
